FAERS Safety Report 24914240 (Version 1)
Quarter: 2025Q1

REPORT INFORMATION
  Report Type: Spontaneous
  Country: US (occurrence: US)
  Receive Date: 20250202
  Receipt Date: 20250202
  Transmission Date: 20250409
  Serious: No
  Sender: BRISTOL-MYERS SQUIBB COMPANY
  Company Number: US-BRISTOL-MYERS SQUIBB COMPANY-2025-011927

PATIENT
  Sex: Male

DRUGS (2)
  1. SOTYKTU [Suspect]
     Active Substance: DEUCRAVACITINIB
     Indication: Psoriasis
     Dates: start: 202407
  2. WYNZORA [Concomitant]
     Active Substance: BETAMETHASONE DIPROPIONATE\CALCIPOTRIENE
     Indication: Psoriasis

REACTIONS (9)
  - Arthritis [Unknown]
  - Skin hyperpigmentation [Unknown]
  - Folliculitis [Unknown]
  - Laryngitis [Unknown]
  - Gastroenteritis viral [Unknown]
  - Illness [Unknown]
  - Skin atrophy [Unknown]
  - Hyperaesthesia [Unknown]
  - Acne [Unknown]
